FAERS Safety Report 19908338 (Version 1)
Quarter: 2021Q4

REPORT INFORMATION
  Report Type: Spontaneous
  Country: US (occurrence: US)
  Receive Date: 20211001
  Receipt Date: 20211001
  Transmission Date: 20220303
  Serious: No
  Sender: FDA-Public Use
  Company Number: US-MYLANLABS-2021M1065861

PATIENT
  Sex: Male

DRUGS (1)
  1. ATORVASTATIN CALCIUM [Suspect]
     Active Substance: ATORVASTATIN CALCIUM
     Indication: Hyperlipidaemia
     Dosage: 80 MILLIGRAM, QD
     Route: 048
     Dates: end: 201910

REACTIONS (4)
  - Limb discomfort [Not Recovered/Not Resolved]
  - Wheelchair user [Not Recovered/Not Resolved]
  - Myopathy [Not Recovered/Not Resolved]
  - Gait disturbance [Not Recovered/Not Resolved]
